FAERS Safety Report 5732435-9 (Version None)
Quarter: 2008Q2

REPORT INFORMATION
  Report Type: 
  Country: None (occurrence: None)
  Receive Date: 20080507
  Receipt Date: 20080422
  Transmission Date: 20081010
  Serious: Yes (Hospitalization)
  Sender: FDA-Public Use
  Company Number: ENTC2008-0124

PATIENT
  Age: 78 Year
  Sex: Female

DRUGS (8)
  1. STALEVO 100 [Suspect]
     Indication: PARKINSON'S DISEASE
     Dosage: 500/125/1000 MG, ORAL
     Route: 048
  2. LOVENOX [Suspect]
     Indication: PROPHYLAXIS
     Dosage: 4000 IU QD  SUBCUTANEOUS
     Dates: start: 20080117, end: 20080124
  3. ROCEPHIN [Suspect]
     Indication: ESCHERICHIA SEPSIS
     Dosage: 1 G QD,  INTRAVENOUS (NOT OTHERWISE SPECIFIED)
     Route: 042
     Dates: start: 20080116, end: 20080124
  4. LEXOMIL [Suspect]
     Indication: ANXIETY
     Dosage: ORAL
     Route: 048
     Dates: start: 20080116, end: 20080118
  5. ACETAMINOPHEN [Suspect]
     Indication: PAIN
     Dosage: 1 G QD   ORAL
     Route: 048
     Dates: start: 20080118, end: 20080120
  6. NULYTELY [Concomitant]
  7. LEVOTHYROXINE SODIUM [Concomitant]
  8. VASTAREL BIOPHARMA [Concomitant]

REACTIONS (5)
  - ESCHERICHIA SEPSIS [None]
  - FAECALOMA [None]
  - GENERAL PHYSICAL HEALTH DETERIORATION [None]
  - ORTHOSTATIC HYPOTENSION [None]
  - SUBILEUS [None]
